FAERS Safety Report 5283847-1 (Version None)
Quarter: 2007Q2

REPORT INFORMATION
  Report Type: 
  Country: None (occurrence: None)
  Receive Date: 20070402
  Receipt Date: 20070323
  Transmission Date: 20071010
  Serious: Yes (Hospitalization)
  Sender: FDA-Public Use
  Company Number: CZ-ABBOTT-05P-217-0286759-00

PATIENT
  Sex: Female
  Weight: 82 kg

DRUGS (16)
  1. HUMIRA [Suspect]
     Indication: RHEUMATOID ARTHRITIS
     Route: 058
     Dates: start: 20031118, end: 20041116
  2. HUMIRA [Suspect]
     Route: 058
     Dates: start: 20041130
  3. PREDNISONE [Concomitant]
     Indication: RHEUMATOID ARTHRITIS
     Route: 048
     Dates: start: 20011005
  4. TRAMADOL HCL [Concomitant]
     Indication: RHEUMATOID ARTHRITIS
     Route: 048
     Dates: start: 20011015
  5. ERGOCALCIFEROL [Concomitant]
     Indication: OSTEOPENIA
     Route: 048
     Dates: start: 20030114
  6. ZOPICLONUM [Concomitant]
     Indication: INSOMNIA
     Route: 048
     Dates: start: 20030623
  7. CALCIUM [Concomitant]
     Indication: OSTEOPENIA
     Route: 048
     Dates: start: 20030114
  8. BROMAZEPAM [Concomitant]
     Indication: ASTHENIA
     Route: 048
     Dates: start: 20010901, end: 20041108
  9. BISOPROLOL [Concomitant]
     Indication: HYPERTENSION
     Route: 048
     Dates: start: 20040624
  10. TELMISARTAN [Concomitant]
     Indication: HYPERTENSION
     Route: 048
     Dates: start: 20040624
  11. HYDROCHLOROTHIAZIDE [Concomitant]
     Indication: HYPERTENSION
     Route: 048
     Dates: start: 20040624
  12. AMILORIDE HYDROCHLORIDE [Concomitant]
     Indication: HYPERTENSION
     Route: 048
     Dates: start: 20040624
  13. VALDECOXIB [Concomitant]
     Indication: RHEUMATOID ARTHRITIS
     Route: 048
     Dates: start: 20040728
  14. RILMENIDINE [Concomitant]
     Indication: HYPERTENSION
     Route: 048
     Dates: start: 20040624
  15. CITALOPRAM HYDROBROMIDE [Concomitant]
     Indication: ASTHENIA
     Route: 048
     Dates: start: 20040624, end: 20041129
  16. LACIDIPINE [Concomitant]
     Indication: HYPERTENSION
     Route: 048
     Dates: start: 20041101

REACTIONS (2)
  - BACK PAIN [None]
  - NEUROLOGICAL INFECTION [None]
